FAERS Safety Report 24532944 (Version 1)
Quarter: 2024Q4

REPORT INFORMATION
  Report Type: Spontaneous
  Country: JP (occurrence: JP)
  Receive Date: 20241022
  Receipt Date: 20241022
  Transmission Date: 20250115
  Serious: Yes (Other)
  Sender: TEVA
  Company Number: JP-TEVA-VS-3254231

PATIENT
  Age: 51 Year
  Sex: Male

DRUGS (4)
  1. TRISENOX [Suspect]
     Active Substance: ARSENIC TRIOXIDE
     Indication: Acute promyelocytic leukaemia
     Route: 041
  2. MYLOTARG [Concomitant]
     Active Substance: GEMTUZUMAB OZOGAMICIN
     Indication: Acute promyelocytic leukaemia
  3. TAMIBAROTENE [Concomitant]
     Active Substance: TAMIBAROTENE
     Indication: Acute promyelocytic leukaemia
  4. CYTARABINE [Suspect]
     Active Substance: CYTARABINE
     Indication: Acute promyelocytic leukaemia
     Route: 042

REACTIONS (1)
  - Central nervous system leukaemia [Unknown]
